FAERS Safety Report 9087428 (Version 1)
Quarter: 2013Q1

REPORT INFORMATION
  Report Type: Report from Study
  Country: US (occurrence: US)
  Receive Date: 20130201
  Receipt Date: 20130201
  Transmission Date: 20140127
  Serious: Yes (Hospitalization)
  Sender: FDA-Public Use
  Company Number: US-SANOFI-AVENTIS-2013SA005948

PATIENT
  Age: 61 Year
  Sex: Male

DRUGS (19)
  1. DOCETAXEL [Suspect]
     Indication: PROSTATE CANCER
     Dosage: FOR 3 CYCLES
     Route: 042
     Dates: start: 20121102, end: 20121214
  2. DOCETAXEL [Suspect]
     Indication: PROSTATE CANCER
     Dosage: FOR 7 CYCLES
     Route: 042
     Dates: start: 20130104, end: 20130104
  3. LEUPROLIDE ACETATE [Suspect]
     Indication: PROSTATE CANCER
     Dosage: EVERY 3 MONTHS
     Route: 030
     Dates: start: 20121102, end: 20121102
  4. CASODEX [Suspect]
     Indication: PROSTATE CANCER
     Route: 048
     Dates: start: 20121031, end: 20130109
  5. THERAPEUTIC RADIOPHARMACEUTICALS [Suspect]
     Indication: PROSTATE CANCER
     Dosage: 900 CGY
     Route: 065
     Dates: start: 20130102, end: 20130108
  6. ATIVAN [Concomitant]
     Dosage: AS NEEDED
     Route: 048
  7. CALCIUM/VITAMIN D [Concomitant]
     Route: 048
  8. COMPAZINE [Concomitant]
     Dosage: AS NEEDED
     Route: 048
  9. DEXAMETHASONE [Concomitant]
     Route: 048
  10. FISH OIL [Concomitant]
     Route: 048
  11. FLUTICASONE PROPIONATE [Concomitant]
     Route: 055
  12. FLUTICASONE [Concomitant]
  13. LORATADINE [Concomitant]
     Route: 048
  14. MICONAZOLE NITRATE [Concomitant]
     Dosage: STRENGTH: 2 %
     Route: 061
  15. MULTIVITAMINS [Concomitant]
     Route: 048
  16. PRAVACHOL [Concomitant]
     Route: 048
  17. PSYLLIUM HUSK [Concomitant]
     Route: 048
  18. ALBUTEROL [Concomitant]
     Dosage: INHALER HFA 2 PUFF INH Q4H PRN
  19. ZOFRAN [Concomitant]
     Dosage: AS NEEDED
     Route: 048

REACTIONS (9)
  - Cerebral ischaemia [Recovered/Resolved]
  - Movement disorder [Recovered/Resolved]
  - Asthenia [Recovered/Resolved]
  - Dysarthria [Recovered/Resolved]
  - Visual impairment [Recovered/Resolved]
  - VIIth nerve paralysis [Recovered/Resolved]
  - Dysarthria [Recovered/Resolved]
  - Tongue paralysis [Recovered/Resolved]
  - Grip strength decreased [Recovered/Resolved]
